FAERS Safety Report 23400896 (Version 1)
Quarter: 2024Q1

REPORT INFORMATION
  Report Type: Spontaneous
  Country: RS (occurrence: RS)
  Receive Date: 20240115
  Receipt Date: 20240115
  Transmission Date: 20240409
  Serious: Yes (Other)
  Sender: FDA-Public Use
  Company Number: RS-GLAXOSMITHKLINE-RS2024EME002745

PATIENT

DRUGS (1)
  1. INCRUSE ELLIPTA [Suspect]
     Active Substance: UMECLIDINIUM BROMIDE
     Indication: Chronic obstructive pulmonary disease
     Dosage: 1 PUFF(S), QD (1X30 DOSE)
     Dates: start: 20231128, end: 20231129

REACTIONS (7)
  - Dizziness [Unknown]
  - Headache [Unknown]
  - Tachycardia [Unknown]
  - Dry mouth [Unknown]
  - Dysphagia [Unknown]
  - Oropharyngeal pain [Unknown]
  - Myalgia [Unknown]

NARRATIVE: CASE EVENT DATE: 20231129
